FAERS Safety Report 14638693 (Version 1)
Quarter: 2018Q1

REPORT INFORMATION
  Report Type: Spontaneous
  Country: US (occurrence: US)
  Receive Date: 20180315
  Receipt Date: 20180315
  Transmission Date: 20180509
  Serious: No
  Sender: FDA-Public Use
  Company Number: US-BIOGEN-2018BI00537836

PATIENT
  Sex: Male

DRUGS (1)
  1. TYSABRI [Suspect]
     Active Substance: NATALIZUMAB
     Indication: MULTIPLE SCLEROSIS
     Dosage: INFUSED OVER 1 HOUR
     Route: 065
     Dates: start: 201712

REACTIONS (5)
  - Constipation [Not Recovered/Not Resolved]
  - Multiple sclerosis [Unknown]
  - Pollakiuria [Not Recovered/Not Resolved]
  - Bradyphrenia [Unknown]
  - Diplopia [Unknown]
